FAERS Safety Report 9934798 (Version 2)
Quarter: 2014Q1

REPORT INFORMATION
  Report Type: Report from Study
  Country: JP (occurrence: JP)
  Receive Date: 20140228
  Receipt Date: 20140318
  Transmission Date: 20141002
  Serious: Yes (Hospitalization)
  Sender: FDA-Public Use
  Company Number: JP-GLAXOSMITHKLINE-B0929777C

PATIENT
  Age: 48 Year
  Sex: Female

DRUGS (13)
  1. TOPOTECAN HCL [Suspect]
     Indication: CERVIX CARCINOMA
     Dosage: .75MGM2 CYCLIC
     Route: 042
     Dates: start: 20130917
  2. CISPLATIN [Suspect]
     Indication: CERVIX CARCINOMA
     Dosage: 50MGM2 CYCLIC
     Route: 042
     Dates: start: 20130917
  3. LOXONIN [Concomitant]
     Dates: start: 20130830
  4. TAKEPRON [Concomitant]
     Dates: start: 20131009
  5. MAGLAX [Concomitant]
     Dates: start: 20130920
  6. OXYCONTIN [Concomitant]
     Dates: start: 20140128
  7. OXYNORM [Concomitant]
     Dates: start: 20131219
  8. COCARL [Concomitant]
     Dates: start: 20140219
  9. EMEND [Concomitant]
     Dates: start: 20140219
  10. PRIMPERAN [Concomitant]
     Dates: start: 20140218
  11. DECADRON [Concomitant]
     Dates: start: 20140219
  12. GRANISETRON [Concomitant]
     Dates: start: 20140219
  13. PURSENNID [Concomitant]
     Dates: start: 20140217

REACTIONS (1)
  - Urinary tract infection [Recovered/Resolved]
